FAERS Safety Report 9628927 (Version 2)
Quarter: 2013Q4

REPORT INFORMATION
  Report Type: Report from Study
  Country: US (occurrence: US)
  Receive Date: 20131017
  Receipt Date: 20131017
  Transmission Date: 20140711
  Serious: Yes (Hospitalization)
  Sender: FDA-Public Use
  Company Number: US-IPSEN BIOPHARMACEUTICALS, INC.-2013-3394

PATIENT
  Age: 45 Year
  Sex: Male

DRUGS (27)
  1. SOMATULINE DEPOT INJECTION (60MG) [Suspect]
     Indication: ACROMEGALY
     Dosage: 60 MG
     Route: 058
     Dates: start: 20130709, end: 20130709
  2. SERTZOLINE [Concomitant]
     Indication: PRODUCT USED FOR UNKNOWN INDICATION
     Route: 048
  3. SYNTHROID [Concomitant]
     Indication: THYROID HORMONE REPLACEMENT THERAPY
     Route: 048
  4. SYNTHROID [Concomitant]
     Route: 048
  5. BUPROPION HCL [Concomitant]
     Indication: POST-TRAUMATIC STRESS DISORDER
     Route: 048
  6. BUPROPION HCL [Concomitant]
     Indication: DEPRESSION
     Route: 048
  7. TESTOSTERONE [Concomitant]
     Indication: PRODUCT USED FOR UNKNOWN INDICATION
     Dosage: 2 PACKETS DAILY
     Route: 065
  8. TRAZODONE HCL [Concomitant]
     Indication: INSOMNIA
     Route: 048
  9. TRAZODONE HCL [Concomitant]
     Route: 048
  10. HYDROCORTISONE [Concomitant]
     Indication: POST-TRAUMATIC STRESS DISORDER
     Route: 048
  11. HYDROCORTISONE [Concomitant]
     Indication: DEPRESSION
     Route: 048
  12. PSEUDOEPHEDRINE HCL [Concomitant]
     Indication: PULMONARY CONGESTION
     Route: 048
  13. SERTRALINE HCL [Concomitant]
     Indication: POST-TRAUMATIC STRESS DISORDER
     Route: 048
  14. SERTRALINE HCL [Concomitant]
     Indication: DEPRESSION
     Route: 048
  15. SIMVASTATIN [Concomitant]
     Indication: BLOOD CHOLESTEROL INCREASED
     Route: 048
  16. BENZOYL PEROXIDE 5% [Concomitant]
     Indication: SKIN DISORDER
     Dosage: NOT REPORTED
     Route: 065
  17. BENZOYL PEROXIDE 5% [Concomitant]
     Indication: DEPRESSION
  18. CLINDAMYCIN PO4 1% GEL [Concomitant]
     Indication: SKIN DISORDER
     Dosage: NOT REPORTED
     Route: 065
  19. CLINDAMYCIN PO4 1% GEL [Concomitant]
     Indication: DEPRESSION
  20. CETIRIZINE HCL [Concomitant]
     Indication: HYPERSENSITIVITY
     Route: 048
  21. CETIRIZINE HCL [Concomitant]
     Indication: DEPRESSION
  22. PSEUDOEPHEDRINE HCL [Concomitant]
     Indication: CONJUNCTIVAL HYPERAEMIA
     Dosage: MAX 4 DOSES IN 24 H
     Route: 048
  23. PSEUDOEPHEDRINE HCL [Concomitant]
     Indication: DEPRESSION
  24. SILDENAFIL CITRATE [Concomitant]
     Indication: PRODUCT USED FOR UNKNOWN INDICATION
     Route: 048
  25. SILDENAFIL CITRATE [Concomitant]
     Indication: DEPRESSION
  26. TESTOSTERONE 1% 12.4 MG PUMP/GEL [Concomitant]
     Indication: PRODUCT USED FOR UNKNOWN INDICATION
     Dosage: 1 PACKET DAILY
     Route: 065
  27. LIOTHYRONINE NA [Concomitant]
     Indication: PRODUCT USED FOR UNKNOWN INDICATION
     Route: 048

REACTIONS (1)
  - Suicide attempt [Recovered/Resolved]
